FAERS Safety Report 11930067 (Version 1)
Quarter: 2016Q1

REPORT INFORMATION
  Report Type: Spontaneous
  Country: US (occurrence: US)
  Receive Date: 20160120
  Receipt Date: 20160120
  Transmission Date: 20160526
  Serious: No
  Sender: FDA-Public Use
  Company Number: US-WATSON-2015-22553

PATIENT
  Sex: Female

DRUGS (3)
  1. ALBUTEROL SULFATE-IPRATROPIUM BROMIDE (WATSON LABORATORIES) [Suspect]
     Active Substance: ALBUTEROL SULFATE\IPRATROPIUM BROMIDE
     Indication: EMPHYSEMA
     Dosage: UNK, TID
     Route: 055
     Dates: start: 201501, end: 20150702
  2. ALBUTEROL SULFATE-IPRATROPIUM BROMIDE (WATSON LABORATORIES) [Suspect]
     Active Substance: ALBUTEROL SULFATE\IPRATROPIUM BROMIDE
     Indication: CHRONIC OBSTRUCTIVE PULMONARY DISEASE
  3. OXYGEN. [Concomitant]
     Active Substance: OXYGEN
     Indication: PRODUCT USED FOR UNKNOWN INDICATION
     Dosage: 24 HOURS/DAY
     Route: 055

REACTIONS (5)
  - Palpitations [Recovering/Resolving]
  - Ageusia [Recovering/Resolving]
  - Heart rate increased [Recovering/Resolving]
  - Peripheral swelling [Recovering/Resolving]
  - Vision blurred [Not Recovered/Not Resolved]
